FAERS Safety Report 23210724 (Version 1)
Quarter: 2023Q4

REPORT INFORMATION
  Report Type: Spontaneous
  Country: NZ (occurrence: NZ)
  Receive Date: 20231121
  Receipt Date: 20231121
  Transmission Date: 20240109
  Serious: Yes (Other)
  Sender: FDA-Public Use
  Company Number: NZ-BAYER-2023A163044

PATIENT
  Age: 17 Year
  Sex: Female

DRUGS (1)
  1. MIRENA [Suspect]
     Active Substance: LEVONORGESTREL
     Indication: Contraception
     Dosage: 20?G/DAY
     Route: 015
     Dates: start: 20230201

REACTIONS (3)
  - Solar urticaria [Not Recovered/Not Resolved]
  - Photosensitivity reaction [None]
  - Urticaria [None]

NARRATIVE: CASE EVENT DATE: 20230301
